FAERS Safety Report 7904565-4 (Version None)
Quarter: 2011Q4

REPORT INFORMATION
  Report Type: 
  Country: None (occurrence: None)
  Receive Date: 20111109
  Receipt Date: 20111031
  Transmission Date: 20120403
  Serious: Yes (Hospitalization, Other)
  Sender: FDA-Public Use
  Company Number: JP-B.I. PHARMACEUTICALS,INC./RIDGEFIELD-2011-BP-23458NB

PATIENT
  Sex: Female
  Weight: 40 kg

DRUGS (12)
  1. PRADAXA [Suspect]
     Indication: ATRIAL FIBRILLATION
     Dosage: 220 MG
     Route: 048
     Dates: start: 20110524, end: 20110906
  2. VERAPAMIL HCL [Concomitant]
     Indication: TACHYCARDIA
     Dosage: 120 MG
     Route: 048
  3. MAGNESIUM OXIDE [Concomitant]
     Indication: CONSTIPATION
     Dosage: 3 G
     Route: 048
  4. WHITE PEROLATUM [Concomitant]
     Indication: DERMATITIS
     Route: 062
     Dates: start: 19911117
  5. LANIRAPID [Concomitant]
     Indication: CARDIAC FAILURE
     Dosage: 0.05 MG
     Route: 048
  6. MOTILIUM [Concomitant]
     Indication: VOMITING
     Dosage: 60 MG
     Route: 054
     Dates: start: 20110902, end: 20110902
  7. POTASSIUM CHLORIDE [Concomitant]
     Indication: DECREASED APPETITE
     Dosage: 500 ML
     Route: 042
     Dates: start: 20110906, end: 20110907
  8. PRADAXA [Suspect]
     Dosage: 75 MG
     Route: 048
     Dates: start: 20110601, end: 20110906
  9. ALDACTONE [Concomitant]
     Indication: CARDIAC FAILURE
     Dosage: 25 MG
     Route: 048
  10. AZUNOL [Concomitant]
     Indication: DERMATITIS
     Route: 062
     Dates: start: 19911117
  11. DICLOFENAC SODIUM [Concomitant]
     Dosage: NR
     Route: 065
  12. KENEI G [Concomitant]
     Indication: CONSTIPATION
     Dosage: 60 MG
     Route: 054
     Dates: start: 20110906, end: 20110906

REACTIONS (8)
  - GASTRIC ULCER [None]
  - CONSTIPATION [None]
  - BACTERIAL INFECTION [None]
  - HAEMORRHAGE [None]
  - PYOMETRA [None]
  - GASTROINTESTINAL HAEMORRHAGE [None]
  - ANAEMIA [None]
  - RENAL FAILURE ACUTE [None]
